FAERS Safety Report 25787418 (Version 1)
Quarter: 2025Q3

REPORT INFORMATION
  Report Type: Spontaneous
  Country: US (occurrence: US)
  Receive Date: 20250910
  Receipt Date: 20250910
  Transmission Date: 20251020
  Serious: No
  Sender: SANDOZ
  Company Number: US-Sandoz Group AG-00203427

PATIENT
  Sex: Female

DRUGS (1)
  1. ESTRADIOL [Suspect]
     Active Substance: ESTRADIOL
     Indication: Product used for unknown indication
     Dosage: ESTRADIOL 0.05MG/24H 8TTS V1Q2W
     Route: 065

REACTIONS (3)
  - Haemorrhage [Unknown]
  - Headache [Unknown]
  - Hot flush [Unknown]
